FAERS Safety Report 24291679 (Version 1)
Quarter: 2024Q3

REPORT INFORMATION
  Report Type: Spontaneous
  Country: US (occurrence: None)
  Receive Date: 20240906
  Receipt Date: 20240906
  Transmission Date: 20241016
  Serious: No
  Sender: DOMPE FARMACEUTICI
  Company Number: US-FARMAPROD-202310-2924

PATIENT
  Age: 77 Year
  Sex: Male

DRUGS (12)
  1. OXERVATE [Suspect]
     Active Substance: CENEGERMIN-BKBJ
     Indication: Neurotrophic keratopathy
     Route: 047
     Dates: start: 20230919
  2. OXERVATE [Suspect]
     Active Substance: CENEGERMIN-BKBJ
  3. LISINOPRIL [Concomitant]
     Active Substance: LISINOPRIL
  4. GABAPENTIN [Concomitant]
     Active Substance: GABAPENTIN
  5. GABAPENTIN [Concomitant]
     Active Substance: GABAPENTIN
  6. METOPROLOL SUCCINATE [Concomitant]
     Active Substance: METOPROLOL SUCCINATE
  7. PANTOPRAZOLE SODIUM [Concomitant]
     Active Substance: PANTOPRAZOLE SODIUM
  8. CALCIUM\CHOLECALCIFEROL [Concomitant]
     Active Substance: CALCIUM\CHOLECALCIFEROL
     Dosage: 600 MG-12.5
  9. TRAZODONE HCL [Concomitant]
     Active Substance: TRAZODONE HYDROCHLORIDE
  10. ATORVASTATIN CALCIUM [Concomitant]
     Active Substance: ATORVASTATIN CALCIUM
  11. ACETAMINOPHEN [Concomitant]
     Active Substance: ACETAMINOPHEN
  12. ORGOVYX [Concomitant]
     Active Substance: RELUGOLIX

REACTIONS (4)
  - Eye pain [Unknown]
  - Treatment noncompliance [Unknown]
  - Wrong technique in product usage process [Unknown]
  - Product dose omission issue [Unknown]

NARRATIVE: CASE EVENT DATE: 20230928
